FAERS Safety Report 6717202-1 (Version None)
Quarter: 2010Q2

REPORT INFORMATION
  Report Type: 
  Country: None (occurrence: None)
  Receive Date: 20100510
  Receipt Date: 20100427
  Transmission Date: 20101027
  Serious: Yes (Other)
  Sender: FDA-Public Use
  Company Number: PHHY2010BR27156

PATIENT
  Sex: Female

DRUGS (2)
  1. DIOVAN HCT [Suspect]
     Indication: HYPERTENSION
     Dosage: 1 TABLET DAILY
     Route: 048
  2. DIOVAN HCT [Suspect]
     Dosage: 1 TABLET DAILY
     Route: 048
     Dates: start: 20100428

REACTIONS (4)
  - DENGUE FEVER [None]
  - DIZZINESS [None]
  - HEADACHE [None]
  - TREATMENT NONCOMPLIANCE [None]
